FAERS Safety Report 6747378-1 (Version None)
Quarter: 2010Q2

REPORT INFORMATION
  Report Type: 
  Country: None (occurrence: None)
  Receive Date: 20100528
  Receipt Date: 20100521
  Transmission Date: 20101027
  Serious: Yes (Hospitalization)
  Sender: FDA-Public Use
  Company Number: B0656573A

PATIENT
  Sex: Male

DRUGS (4)
  1. AUGMENTIN '125' [Suspect]
     Indication: DRUG USE FOR UNKNOWN INDICATION
     Dosage: 3G PER DAY
     Route: 042
     Dates: start: 20100325, end: 20100330
  2. TAXOTERE [Suspect]
     Indication: DRUG USE FOR UNKNOWN INDICATION
     Dosage: 130MG SINGLE DOSE
     Route: 042
     Dates: start: 20100323, end: 20100323
  3. CISPLATIN [Suspect]
     Indication: CHEMOTHERAPY
     Dosage: 129MG SINGLE DOSE
     Route: 042
     Dates: start: 20100323, end: 20100323
  4. FLUOROURACIL [Suspect]
     Indication: CHEMOTHERAPY
     Dosage: 1300MG PER DAY
     Route: 042
     Dates: start: 20100323, end: 20100327

REACTIONS (3)
  - ABDOMINAL PAIN [None]
  - COLITIS [None]
  - DIARRHOEA [None]
